FAERS Safety Report 16770439 (Version 3)
Quarter: 2019Q4

REPORT INFORMATION
  Report Type: Spontaneous
  Country: US (occurrence: US)
  Receive Date: 20190904
  Receipt Date: 20191226
  Transmission Date: 20200122
  Serious: Yes (Other)
  Sender: FDA-Public Use
  Company Number: US-GLAXOSMITHKLINE-US2019AMR159612

PATIENT
  Age: 59 Year
  Sex: Female
  Weight: 83.64 kg

DRUGS (3)
  1. TRAMADOL. [Suspect]
     Active Substance: TRAMADOL
     Indication: PRODUCT USED FOR UNKNOWN INDICATION
     Dosage: UNK, PRN
     Route: 048
  2. ANORO ELLIPTA [Suspect]
     Active Substance: UMECLIDINIUM BROMIDE\VILANTEROL TRIFENATATE
     Indication: CHRONIC OBSTRUCTIVE PULMONARY DISEASE
     Dosage: 1 PUFF(S), UNK
     Route: 065
     Dates: start: 20190508, end: 201905
  3. ASPIRIN. [Suspect]
     Active Substance: ASPIRIN
     Indication: PRODUCT USED FOR UNKNOWN INDICATION
     Dosage: UNK, 1D
     Route: 048

REACTIONS (17)
  - Cystitis [Unknown]
  - Dysuria [Unknown]
  - Urinary retention [Unknown]
  - Pollakiuria [Unknown]
  - Adverse drug reaction [Unknown]
  - Anger [Unknown]
  - Abdominal pain [Unknown]
  - Bladder cancer [Unknown]
  - Calculus bladder [Unknown]
  - Calculus urinary [Unknown]
  - Urinary incontinence [Unknown]
  - Groin pain [Unknown]
  - Urinary tract infection [Unknown]
  - Surgery [Unknown]
  - Depressed mood [Unknown]
  - Therapy cessation [Unknown]
  - Pain [Unknown]

NARRATIVE: CASE EVENT DATE: 201907
